FAERS Safety Report 5334945-5 (Version None)
Quarter: 2007Q2

REPORT INFORMATION
  Report Type: 
  Country: None (occurrence: None)
  Receive Date: 20070525
  Receipt Date: 20070524
  Transmission Date: 20071010
  Serious: Yes (Death, Life-Threatening, Hospitalization)
  Sender: FDA-Public Use
  Company Number: NL-JNJFOC-20070103955

PATIENT
  Sex: Male

DRUGS (10)
  1. PLACEBO [Suspect]
     Route: 042
  2. PLACEBO [Suspect]
     Route: 042
  3. PLACEBO [Suspect]
     Route: 042
  4. PLACEBO [Suspect]
     Route: 042
  5. REMICADE [Suspect]
     Indication: IDIOPATHIC PULMONARY FIBROSIS
     Route: 042
  6. AZATHIOPRINE [Concomitant]
     Route: 048
  7. COZAAR [Concomitant]
     Route: 048
  8. FLUIMUCIL [Concomitant]
     Route: 048
  9. ACTONEL [Concomitant]
  10. CALCI-CHEW D [Concomitant]

REACTIONS (2)
  - DYSPNOEA [None]
  - NEOPLASM MALIGNANT [None]
